FAERS Safety Report 9911175 (Version 1)
Quarter: 2014Q1

REPORT INFORMATION
  Report Type: Spontaneous
  Country: US (occurrence: US)
  Receive Date: 20140219
  Receipt Date: 20140219
  Transmission Date: 20141002
  Serious: No
  Sender: FDA-Public Use
  Company Number: US-GILEAD-2014-0094730

PATIENT
  Age: 62 Year
  Sex: Female

DRUGS (3)
  1. SOVALDI [Suspect]
     Indication: HEPATITIS C
     Dosage: 400 MG, UNK
     Route: 065
     Dates: start: 20140207
  2. RIBAVIRIN [Concomitant]
  3. FUROSEMIDE [Concomitant]
     Dosage: UNK
     Dates: start: 201401

REACTIONS (3)
  - Salt craving [Unknown]
  - Food craving [Unknown]
  - Muscular weakness [Unknown]
